FAERS Safety Report 10383410 (Version 1)
Quarter: 2014Q3

REPORT INFORMATION
  Report Type: Spontaneous
  Country: FR (occurrence: FR)
  Receive Date: 20140814
  Receipt Date: 20140814
  Transmission Date: 20150326
  Serious: Yes (Other)
  Sender: FDA-Public Use
  Company Number: PHHY2014FR096962

PATIENT
  Age: 88 Year
  Sex: Male

DRUGS (8)
  1. FUROSEMIDE. [Concomitant]
     Active Substance: FUROSEMIDE
  2. FLUINDIONE [Concomitant]
     Active Substance: FLUINDIONE
  3. ATORVASTATIN [Concomitant]
     Active Substance: ATORVASTATIN
  4. CINACALCET [Concomitant]
     Active Substance: CINACALCET
  5. ENOXAPARIN SODIUM. [Suspect]
     Active Substance: ENOXAPARIN SODIUM
     Dosage: 4000 U 3 TIMES PER WEEK FOR 3 YEARS
     Route: 042
  6. HEPARIN [Concomitant]
     Active Substance: HEPARIN SODIUM
  7. ALFACALCIDOL [Concomitant]
     Active Substance: ALFACALCIDOL
  8. RAMIPRIL. [Concomitant]
     Active Substance: RAMIPRIL

REACTIONS (6)
  - Dizziness [Recovered/Resolved]
  - Cyanosis [Recovered/Resolved]
  - Heparin-induced thrombocytopenia [Recovered/Resolved]
  - Cardiac arrest [Recovered/Resolved]
  - Dyspnoea [Recovered/Resolved]
  - Loss of consciousness [Recovered/Resolved]
